FAERS Safety Report 26149775 (Version 2)
Quarter: 2025Q4

REPORT INFORMATION
  Report Type: Report from Study
  Country: US (occurrence: US)
  Receive Date: 20251212
  Receipt Date: 20251221
  Transmission Date: 20260118
  Serious: Yes (Hospitalization)
  Sender: UNITED THERAPEUTICS
  Company Number: US-UNITED THERAPEUTICS-UNT-2025-041173

PATIENT
  Sex: Female

DRUGS (7)
  1. TREPROSTINIL SODIUM [Suspect]
     Active Substance: TREPROSTINIL SODIUM
     Indication: Pulmonary arterial hypertension
     Dosage: 0.01667 ?G/KG, CONTINUING
  2. TREPROSTINIL SODIUM [Suspect]
     Active Substance: TREPROSTINIL SODIUM
     Dosage: UNK, CONTINUING
  3. YUTREPIA [Suspect]
     Active Substance: TREPROSTINIL SODIUM
     Indication: Pulmonary arterial hypertension
     Dosage: 26.5 ?G, QID
     Dates: start: 202512, end: 202512
  4. YUTREPIA [Suspect]
     Active Substance: TREPROSTINIL SODIUM
     Dosage: 53 ?G, QID
     Dates: start: 202512, end: 202512
  5. YUTREPIA [Suspect]
     Active Substance: TREPROSTINIL SODIUM
     Dosage: 79.5 ?G, QID
     Dates: start: 20251211
  6. YUTREPIA [Suspect]
     Active Substance: TREPROSTINIL SODIUM
     Dosage: 79.5 ?G, ONE TIME DOSE (EXTRA DOSE)
  7. TADLIQ [Concomitant]
     Active Substance: TADALAFIL
     Indication: Product used for unknown indication

REACTIONS (4)
  - Cellulitis [Unknown]
  - Therapy partial responder [Unknown]
  - General physical health deterioration [Unknown]
  - Hypotension [Recovered/Resolved]

NARRATIVE: CASE EVENT DATE: 20250101
